FAERS Safety Report 15151729 (Version 2)
Quarter: 2018Q3

REPORT INFORMATION
  Report Type: Spontaneous
  Country: US (occurrence: US)
  Receive Date: 20180716
  Receipt Date: 20180816
  Transmission Date: 20181010
  Serious: No
  Sender: FDA-Public Use
  Company Number: US-009507513-1807USA001131

PATIENT
  Sex: Female

DRUGS (1)
  1. ASMANEX [Suspect]
     Active Substance: MOMETASONE FUROATE
     Dosage: 220 MICROGRAM, 60 DOSES

REACTIONS (3)
  - Product label confusion [Unknown]
  - Cough [Unknown]
  - Product container issue [Unknown]

NARRATIVE: CASE EVENT DATE: 2018
